FAERS Safety Report 14192690 (Version 1)
Quarter: 2017Q4

REPORT INFORMATION
  Report Type: Spontaneous
  Country: FR (occurrence: FR)
  Receive Date: 20171115
  Receipt Date: 20171115
  Transmission Date: 20180321
  Serious: Yes (Other)
  Sender: FDA-Public Use
  Company Number: FR-MYLANLABS-2017M1072158

PATIENT
  Age: 63 Year
  Sex: Female

DRUGS (5)
  1. AZATHIOPRINE MYLAN [Suspect]
     Active Substance: AZATHIOPRINE
     Indication: IMMUNE-MEDIATED NECROTISING MYOPATHY
     Dosage: 50MG MORNING AND EVENING
     Route: 065
  2. METHOTREXATE. [Suspect]
     Active Substance: METHOTREXATE
     Indication: IMMUNE-MEDIATED NECROTISING MYOPATHY
     Dosage: 15MG/WEEK
     Route: 058
  3. PREDNISONE. [Concomitant]
     Active Substance: PREDNISONE
     Indication: PRODUCT USED FOR UNKNOWN INDICATION
     Dosage: 1 MG/KG/DAY
     Route: 065
     Dates: start: 201304
  4. IMMUNE GLOBULIN [Concomitant]
     Active Substance: HUMAN IMMUNOGLOBULIN G
     Indication: PRODUCT USED FOR UNKNOWN INDICATION
     Dosage: 2 G/KG
     Route: 042
  5. ATORVASTATIN [Suspect]
     Active Substance: ATORVASTATIN
     Indication: ISCHAEMIC STROKE
     Dosage: 80MG PER DAY FOR 2 YEARS
     Route: 065

REACTIONS (3)
  - Neutropenia [Unknown]
  - Haematotoxicity [Unknown]
  - Immune-mediated necrotising myopathy [Recovered/Resolved]
